FAERS Safety Report 23859387 (Version 1)
Quarter: 2024Q2

REPORT INFORMATION
  Report Type: Spontaneous
  Country: JP (occurrence: JP)
  Receive Date: 20240515
  Receipt Date: 20240515
  Transmission Date: 20240716
  Serious: Yes (Death)
  Sender: FDA-Public Use
  Company Number: JP-UCBJ-CD202404172UCBPHAPROD

PATIENT

DRUGS (1)
  1. VIMPAT [Suspect]
     Active Substance: LACOSAMIDE
     Indication: Product used for unknown indication
     Dosage: 400 MILLIGRAM, ONCE DAILY (QD)
     Route: 041

REACTIONS (4)
  - Death [Fatal]
  - Hepatic function abnormal [Unknown]
  - Prescribed overdose [Unknown]
  - Off label use [Unknown]
